FAERS Safety Report 9257950 (Version 4)
Quarter: 2014Q1

REPORT INFORMATION
  Report Type: Spontaneous
  Country: US (occurrence: US)
  Receive Date: 20130426
  Receipt Date: 20140107
  Transmission Date: 20141002
  Serious: Yes (Hospitalization, Other)
  Sender: FDA-Public Use
  Company Number: US-ASTRAZENECA-2013SE27372

PATIENT
  Age: 57 Year
  Sex: Female

DRUGS (26)
  1. NEXIUM [Suspect]
     Indication: DYSPEPSIA
     Dosage: ONCE THEN TWICE A DAY
     Route: 048
     Dates: start: 200711, end: 2011
  2. NEXIUM [Suspect]
     Indication: GASTROOESOPHAGEAL REFLUX DISEASE
     Dosage: ONCE THEN TWICE A DAY
     Route: 048
     Dates: start: 200711, end: 2011
  3. NEXIUM [Suspect]
     Indication: DYSPEPSIA
     Route: 048
     Dates: start: 20080111, end: 2011
  4. NEXIUM [Suspect]
     Indication: GASTROOESOPHAGEAL REFLUX DISEASE
     Route: 048
     Dates: start: 20080111, end: 2011
  5. NEXIUM [Suspect]
     Indication: DYSPEPSIA
     Route: 048
     Dates: start: 20080612, end: 2011
  6. NEXIUM [Suspect]
     Indication: GASTROOESOPHAGEAL REFLUX DISEASE
     Route: 048
     Dates: start: 20080612, end: 2011
  7. NEXIUM [Suspect]
     Indication: DYSPEPSIA
     Route: 048
     Dates: start: 20080423
  8. NEXIUM [Suspect]
     Indication: GASTROOESOPHAGEAL REFLUX DISEASE
     Route: 048
     Dates: start: 20080423
  9. ZANTAC [Concomitant]
     Dates: start: 2011
  10. TAGAMET [Concomitant]
  11. PEPCID [Concomitant]
     Dates: start: 2012
  12. PEPCID [Concomitant]
     Route: 048
     Dates: start: 20130114
  13. TUMS [Concomitant]
  14. PEPTO-BISMOL [Concomitant]
  15. MYLANTA [Concomitant]
  16. SYNTHROID [Concomitant]
     Dates: start: 20101011
  17. VITAMIN D [Concomitant]
     Dates: start: 20100921
  18. FAMOTIDINE [Concomitant]
     Indication: GASTROOESOPHAGEAL REFLUX DISEASE
  19. LEVOTHYROXINE [Concomitant]
     Indication: THYROID DISORDER
  20. CRESTOR [Concomitant]
     Indication: BLOOD CHOLESTEROL ABNORMAL
  21. TRICOR [Concomitant]
     Indication: BLOOD CHOLESTEROL ABNORMAL
  22. LOVAZA [Concomitant]
     Indication: BLOOD CHOLESTEROL ABNORMAL
  23. ZETIA [Concomitant]
     Indication: BLOOD CHOLESTEROL ABNORMAL
  24. PLAVIX [Concomitant]
     Indication: HYPERTENSION
  25. HYDROCODONE [Concomitant]
     Indication: PAIN
  26. ZOLPIDEM [Concomitant]
     Indication: INSOMNIA

REACTIONS (21)
  - Hip fracture [Unknown]
  - Bone pain [Unknown]
  - Cervical vertebral fracture [Unknown]
  - Wrist fracture [Unknown]
  - Spinal fracture [Unknown]
  - Bone disorder [Unknown]
  - Osteoporosis [Unknown]
  - Anxiety [Unknown]
  - Arthritis [Unknown]
  - Bipolar disorder [Unknown]
  - Cardiovascular disorder [Unknown]
  - Clavicle fracture [Unknown]
  - Foot fracture [Unknown]
  - Lung disorder [Unknown]
  - Vitamin D deficiency [Unknown]
  - Osteopenia [Unknown]
  - Chronic obstructive pulmonary disease [Unknown]
  - Carpal tunnel syndrome [Unknown]
  - Trigger finger [Unknown]
  - Tenosynovitis stenosans [Unknown]
  - Depression [Unknown]
